FAERS Safety Report 6814334-4 (Version None)
Quarter: 2010Q3

REPORT INFORMATION
  Report Type: 
  Country: None (occurrence: None)
  Receive Date: 20100702
  Receipt Date: 20100621
  Transmission Date: 20110219
  Serious: Yes (Hospitalization, Other)
  Sender: FDA-Public Use
  Company Number: US-ELI_LILLY_AND_COMPANY-US201006006115

PATIENT
  Sex: Male

DRUGS (7)
  1. FORTEO [Suspect]
     Indication: OSTEOPOROSIS
     Dates: start: 20091201, end: 20100613
  2. PROSCAR [Concomitant]
     Dosage: 5 MG, DAILY (1/D)
  3. MOBIC [Concomitant]
     Dosage: 15 MG, DAILY (1/D)
  4. CRESTOR [Concomitant]
     Dosage: 20 MG, DAILY (1/D)
  5. METOPROLOL TARTRATE [Concomitant]
     Dosage: 50 MG, DAILY (1/D)
  6. PROPAFENONE HCL [Concomitant]
     Dosage: 225 MG, 3/D
  7. COUMADIN [Concomitant]

REACTIONS (3)
  - ARTHRITIS [None]
  - ARTHROPATHY [None]
  - GAIT DISTURBANCE [None]
